FAERS Safety Report 5206114-0 (Version None)
Quarter: 2007Q1

REPORT INFORMATION
  Report Type: 
  Country: None (occurrence: None)
  Receive Date: 20070108
  Receipt Date: 20061228
  Transmission Date: 20070707
  Serious: Yes (Hospitalization)
  Sender: FDA-Public Use
  Company Number: 33264

PATIENT
  Age: 54 Year
  Sex: Female
  Weight: 85.2762 kg

DRUGS (2)
  1. PACLITAXEL [Suspect]
     Indication: OVARIAN CANCER
     Dosage: 160
     Dates: start: 20060911, end: 20061204
  2. CARBOPLATIN [Suspect]
     Indication: OVARIAN CANCER
     Dosage: 500
     Dates: start: 20060911

REACTIONS (2)
  - CEREBRAL INFARCTION [None]
  - VASCULITIS CEREBRAL [None]
